FAERS Safety Report 5278493-X (Version None)
Quarter: 2007Q1

REPORT INFORMATION
  Report Type: 
  Country: None (occurrence: None)
  Receive Date: 20070328
  Receipt Date: 20070323
  Transmission Date: 20070707
  Serious: Yes (Hospitalization)
  Sender: FDA-Public Use
  Company Number: US-BAYER-200710911BWH

PATIENT
  Age: 57 Year
  Sex: Male

DRUGS (5)
  1. NEXAVAR [Suspect]
     Indication: HEPATIC NEOPLASM MALIGNANT
     Dosage: TOTAL DAILY DOSE: 800 MG  UNIT DOSE: 200 MG
     Route: 048
     Dates: start: 20070312
  2. LASIX [Concomitant]
  3. XANAX [Concomitant]
  4. METHADONE HCL [Concomitant]
  5. K-DUR 10 [Concomitant]

REACTIONS (5)
  - DYSURIA [None]
  - OEDEMA PERIPHERAL [None]
  - PENIS DEVIATION [None]
  - TESTICULAR SWELLING [None]
  - THROMBOSIS [None]
